FAERS Safety Report 24816385 (Version 3)
Quarter: 2025Q1

REPORT INFORMATION
  Report Type: Report from Study
  Country: CA (occurrence: CA)
  Receive Date: 20250107
  Receipt Date: 20250123
  Transmission Date: 20250409
  Serious: Yes (Other)
  Sender: BAUSCH AND LOMB
  Company Number: CA-BAUSCH-BL-2024-018942

PATIENT
  Age: 82 Year
  Sex: Female

DRUGS (2)
  1. SILIQ [Suspect]
     Active Substance: BRODALUMAB
     Indication: Psoriasis
     Dosage: 210MG/1.5ML, INDUCTION WEEKLY
     Route: 058
     Dates: start: 20241216, end: 20241230
  2. ASPIRIN [Concomitant]
     Active Substance: ASPIRIN
     Indication: Product used for unknown indication

REACTIONS (15)
  - Malaise [Recovered/Resolved with Sequelae]
  - Eye swelling [Recovered/Resolved with Sequelae]
  - Swelling face [Recovered/Resolved with Sequelae]
  - Abdominal discomfort [Not Recovered/Not Resolved]
  - Dizziness [Not Recovered/Not Resolved]
  - Diarrhoea [Recovered/Resolved with Sequelae]
  - Vision blurred [Not Recovered/Not Resolved]
  - Brain fog [Not Recovered/Not Resolved]
  - Dyspnoea [Unknown]
  - Pain [Not Recovered/Not Resolved]
  - General physical health deterioration [Unknown]
  - Eye infection [Not Recovered/Not Resolved]
  - Headache [Unknown]
  - Intentional product use issue [Unknown]
  - Therapy cessation [Unknown]

NARRATIVE: CASE EVENT DATE: 20241201
